FAERS Safety Report 7640928-2 (Version None)
Quarter: 2011Q3

REPORT INFORMATION
  Report Type: 
  Country: None (occurrence: None)
  Receive Date: 20110728
  Receipt Date: 20110721
  Transmission Date: 20111222
  Serious: Yes (Hospitalization, Other)
  Sender: FDA-Public Use
  Company Number: CA-JNJFOC-20110606486

PATIENT
  Sex: Male
  Weight: 104.5 kg

DRUGS (7)
  1. FOLIC ACID [Concomitant]
  2. SIMPONI [Suspect]
     Indication: PRODUCT USED FOR UNKNOWN INDICATION
     Route: 058
  3. PREVACID [Concomitant]
  4. PERCOCET [Concomitant]
  5. VOLTAREN [Concomitant]
  6. REMICADE [Suspect]
     Indication: RHEUMATOID ARTHRITIS
     Route: 042
     Dates: start: 20110315, end: 20110426
  7. SYNTHROID [Concomitant]

REACTIONS (1)
  - KNEE ARTHROPLASTY [None]
